FAERS Safety Report 6888307-X (Version None)
Quarter: 2010Q3

REPORT INFORMATION
  Report Type: 
  Country: None (occurrence: None)
  Receive Date: 20100730
  Receipt Date: 20100723
  Transmission Date: 20110219
  Serious: Yes (Congenital Anomaly, Other)
  Sender: FDA-Public Use
  Company Number: BR-BRISTOL-MYERS SQUIBB COMPANY-15212632

PATIENT
  Age: 1 Day
  Sex: Female
  Weight: 3 kg

DRUGS (8)
  1. SUSTIVA [Suspect]
     Route: 064
     Dates: end: 20021106
  2. AMOXICILLIN [Suspect]
     Route: 064
  3. NYSTATIN [Suspect]
     Route: 064
  4. VIRACEPT [Suspect]
     Route: 064
     Dates: start: 20021107, end: 20030604
  5. COMBIVIR [Suspect]
     Route: 064
  6. FOLIC ACID [Suspect]
     Route: 064
  7. IRON [Suspect]
     Route: 064
  8. RETINOL [Suspect]
     Route: 064

REACTIONS (2)
  - MELANOCYTIC NAEVUS [None]
  - PATENT DUCTUS ARTERIOSUS [None]
